FAERS Safety Report 8968851 (Version 1)
Quarter: 2012Q4

REPORT INFORMATION
  Report Type: Report from Study
  Country: FR (occurrence: FR)
  Receive Date: 20121217
  Receipt Date: 20121217
  Transmission Date: 20130627
  Serious: Yes (Hospitalization)
  Sender: FDA-Public Use
  Company Number: FR-ROCHE-1169419

PATIENT
  Age: 67 Year
  Sex: Male

DRUGS (6)
  1. RITUXIMAB [Suspect]
     Indication: CHRONIC LYMPHOCYTIC LEUKAEMIA
     Route: 041
     Dates: start: 20111005, end: 20111005
  2. RITUXIMAB [Suspect]
     Route: 041
     Dates: start: 20110909
  3. CYCLOPHOSPHAMIDE [Suspect]
     Indication: CHRONIC LYMPHOCYTIC LEUKAEMIA
     Dosage: 50 mg cpr
     Route: 065
     Dates: start: 20111005, end: 20111007
  4. FLUDARABINE PHOSPHATE [Suspect]
     Indication: CHRONIC LYMPHOCYTIC LEUKAEMIA
     Dosage: 10 mg cpr
     Route: 065
     Dates: start: 20111005, end: 20111007
  5. POLARAMINE [Concomitant]
  6. PERFALGAN [Concomitant]

REACTIONS (1)
  - Febrile bone marrow aplasia [Recovered/Resolved]
